FAERS Safety Report 16004141 (Version 3)
Quarter: 2019Q2

REPORT INFORMATION
  Report Type: Report from Study
  Country: US (occurrence: US)
  Receive Date: 20190226
  Receipt Date: 20190401
  Transmission Date: 20190711
  Serious: Yes (Hospitalization)
  Sender: FDA-Public Use
  Company Number: US-BIOGEN-2019BI00700667

PATIENT
  Sex: Female

DRUGS (2)
  1. TECFIDERA [Suspect]
     Active Substance: DIMETHYL FUMARATE
     Dosage: MAINTENANCE DOSE X 23 DAYS AFTER 120 MILLIGRAM DOSE
     Route: 050
     Dates: start: 201901
  2. TECFIDERA [Suspect]
     Active Substance: DIMETHYL FUMARATE
     Indication: MULTIPLE SCLEROSIS
     Dosage: STARTING DOSE; FOR 7 DAYS
     Route: 050
     Dates: start: 201901

REACTIONS (2)
  - Ankle fracture [Not Recovered/Not Resolved]
  - Fall [Recovered/Resolved]
